FAERS Safety Report 7508127-2 (Version None)
Quarter: 2011Q2

REPORT INFORMATION
  Report Type: 
  Country: None (occurrence: None)
  Receive Date: 20110527
  Receipt Date: 20110503
  Transmission Date: 20111010
  Serious: Yes (Hospitalization, Other)
  Sender: FDA-Public Use
  Company Number: US-BAYER-201025633NA

PATIENT
  Age: 20 Year
  Sex: Female
  Weight: 89.796 kg

DRUGS (5)
  1. MIDOL LIQUID GELS [Concomitant]
     Indication: ANALGESIC THERAPY
  2. NSAID'S [Concomitant]
     Dosage: UNK
     Dates: start: 20040101
  3. ALBUTEROL SULFATE AUTOHALER [Concomitant]
  4. YAZ [Suspect]
     Indication: PRODUCT USED FOR UNKNOWN INDICATION
     Route: 048
     Dates: start: 20090701, end: 20091001
  5. YAZ [Suspect]
     Dosage: UNK
     Dates: start: 20090301, end: 20091001

REACTIONS (7)
  - VISUAL IMPAIRMENT [None]
  - VISION BLURRED [None]
  - ISCHAEMIC CEREBRAL INFARCTION [None]
  - DIPLOPIA [None]
  - HEADACHE [None]
  - HYPOAESTHESIA FACIAL [None]
  - NAUSEA [None]
